FAERS Safety Report 16854965 (Version 1)
Quarter: 2019Q3

REPORT INFORMATION
  Report Type: Spontaneous
  Country: ES (occurrence: ES)
  Receive Date: 20190926
  Receipt Date: 20190926
  Transmission Date: 20191005
  Serious: Yes (Hospitalization)
  Sender: FDA-Public Use
  Company Number: ES-TEVA-2019-ES-1112518

PATIENT
  Age: 75 Year
  Sex: Female

DRUGS (3)
  1. DICLOFENACO (745A) [Suspect]
     Active Substance: DICLOFENAC
     Indication: ARTHRALGIA
     Route: 048
     Dates: start: 200708
  2. TERTENSIF 2,5 MG COMPRIMIDOS RECUBIERTOS CON PELICULA, 30 COMPRIMIDOS [Concomitant]
     Indication: HYPERTENSION
     Dosage: 2.5 MG
     Route: 048
     Dates: start: 200711
  3. OMEPRAZOL (2141A) [Suspect]
     Active Substance: OMEPRAZOLE
     Indication: ARTHRALGIA
     Route: 048
     Dates: start: 200708

REACTIONS (2)
  - Acute kidney injury [Recovered/Resolved]
  - Tubulointerstitial nephritis [Recovered/Resolved]

NARRATIVE: CASE EVENT DATE: 20071121
